FAERS Safety Report 9259959 (Version 3)
Quarter: 2014Q3

REPORT INFORMATION
  Report Type: Spontaneous
  Country: US (occurrence: US)
  Receive Date: 20130429
  Receipt Date: 20140709
  Transmission Date: 20150326
  Serious: Yes (Other)
  Sender: FDA-Public Use
  Company Number: US-BAYER-2013-050594

PATIENT
  Age: 23 Year
  Sex: Female
  Weight: 77.1 kg

DRUGS (2)
  1. METFORMIN [Concomitant]
     Active Substance: METFORMIN HYDROCHLORIDE
     Indication: POLYCYSTIC OVARIES
     Dosage: UNK
     Dates: start: 1995
  2. MIRENA [Suspect]
     Active Substance: LEVONORGESTREL
     Indication: CONTRACEPTION
     Dosage: 20 MCG/24HR, CONT
     Route: 015
     Dates: start: 20091006, end: 20100519

REACTIONS (9)
  - Emotional distress [None]
  - Uterine perforation [None]
  - Pain [None]
  - Anxiety [None]
  - Infertility female [None]
  - Device issue [None]
  - Depression [None]
  - Device dislocation [None]
  - Injury [None]

NARRATIVE: CASE EVENT DATE: 2010
